FAERS Safety Report 19171712 (Version 2)
Quarter: 2021Q2

REPORT INFORMATION
  Report Type: Report from Study
  Country: None (occurrence: FR)
  Receive Date: 20210423
  Receipt Date: 20210427
  Transmission Date: 20210717
  Serious: Yes (Other)
  Sender: FDA-Public Use
  Company Number: FR-ABBVIE-21K-056-3866625-00

PATIENT
  Age: 68 Year
  Sex: Male

DRUGS (1)
  1. HUMIRA [Suspect]
     Active Substance: ADALIMUMAB
     Indication: CROHN^S DISEASE
     Route: 058
     Dates: start: 20201104, end: 20210323

REACTIONS (3)
  - Urinary tract infection [Unknown]
  - Bladder diverticulum [Not Recovered/Not Resolved]
  - Bladder fibrosis [Not Recovered/Not Resolved]

NARRATIVE: CASE EVENT DATE: 2021
